FAERS Safety Report 8825479 (Version 1)
Quarter: 2012Q4

REPORT INFORMATION
  Report Type: 
  Country: PH (occurrence: PH)
  Receive Date: 20121004
  Receipt Date: 20121004
  Transmission Date: 20130627
  Serious: Yes (Death, Hospitalization)
  Sender: FDA-Public Use
  Company Number: PH-BAXTER-2012BAX018421

PATIENT
  Age: 60 Year
  Sex: Female

DRUGS (9)
  1. DIANEAL PD2 WITH 1.5% DEXTROSE [Suspect]
     Indication: CONTINUOUS AMBULATORY PERITONEAL DIALYSIS
     Route: 033
     Dates: start: 20000313
  2. DIANEAL PD2 WITH 4.25% DEXTROSE [Suspect]
     Indication: CONTINUOUS AMBULATORY PERITONEAL DIALYSIS
     Route: 033
     Dates: start: 20000313
  3. OMEPRAZOLE [Concomitant]
     Indication: DRUG USE FOR UNKNOWN INDICATION
     Route: 065
  4. AMLODIPINE [Concomitant]
     Indication: DRUG USE FOR UNKNOWN INDICATION
     Route: 065
  5. METOPROLOL [Concomitant]
     Indication: DRUG USE FOR UNKNOWN INDICATION
     Route: 065
  6. FERROUS SULFATE WITH FOLIC AICD [Concomitant]
     Indication: DRUG USE FOR UNKNOWN INDICATION
     Route: 065
  7. ERYTHROPOIETIN [Concomitant]
     Indication: DRUG USE FOR UNKNOWN INDICATION
     Route: 065
  8. TEGRETOL [Concomitant]
     Indication: DRUG USE FOR UNKNOWN INDICATION
     Route: 065
  9. LIPITOR [Concomitant]
     Indication: DRUG USE FOR UNKNOWN INDICATION
     Route: 065

REACTIONS (4)
  - Septic shock [Fatal]
  - Peritonitis bacterial [Unknown]
  - Peritoneal dialysis complication [Unknown]
  - Pyrexia [Unknown]
